FAERS Safety Report 18883657 (Version 1)
Quarter: 2021Q1

REPORT INFORMATION
  Report Type: Spontaneous
  Country: US (occurrence: US)
  Receive Date: 20210211
  Receipt Date: 20210211
  Transmission Date: 20210420
  Serious: Yes (Other)
  Sender: FDA-Public Use
  Company Number: US-PURDUE PHARMA-USA-2021-0208932

PATIENT
  Sex: Male

DRUGS (1)
  1. OXYCODONE HYDROCHLORIDE (SIMILAR TO NDA 22?272) [Suspect]
     Active Substance: OXYCODONE HYDROCHLORIDE
     Indication: SPINAL OPERATION
     Dosage: UNK
     Route: 048
     Dates: start: 2019

REACTIONS (6)
  - Aggression [Unknown]
  - Abnormal behaviour [Unknown]
  - Drug abuse [Unknown]
  - Anger [Unknown]
  - Euphoric mood [Unknown]
  - Drug dependence [Unknown]
